FAERS Safety Report 9134939 (Version 1)
Quarter: 2013Q1

REPORT INFORMATION
  Report Type: Spontaneous
  Country: US (occurrence: US)
  Receive Date: 20130304
  Receipt Date: 20130304
  Transmission Date: 20140127
  Serious: No
  Sender: FDA-Public Use
  Company Number: US-ENDO PHARMACEUTICALS INC.-ENDC20120001

PATIENT
  Sex: Female
  Weight: 56.75 kg

DRUGS (2)
  1. ENDOCET [Suspect]
     Indication: NEURALGIA
     Dosage: 10/650 MG
     Route: 048
  2. ENDOCET [Suspect]
     Indication: BACK PAIN
     Dosage: 5/325 MG
     Route: 048
     Dates: start: 2010

REACTIONS (2)
  - Inappropriate schedule of drug administration [Unknown]
  - Drug ineffective [Unknown]
